FAERS Safety Report 15173291 (Version 2)
Quarter: 2018Q3

REPORT INFORMATION
  Report Type: Spontaneous
  Country: AT (occurrence: AT)
  Receive Date: 20180720
  Receipt Date: 20180806
  Transmission Date: 20181010
  Serious: Yes (Death, Other)
  Sender: FDA-Public Use
  Company Number: AT-PFIZER INC-2018291088

PATIENT
  Age: 74 Year
  Sex: Male
  Weight: 61 kg

DRUGS (3)
  1. LEUCOVORIN /00566701/ [Suspect]
     Active Substance: LEUCOVORIN
     Indication: PANCREATIC CARCINOMA METASTATIC
     Dosage: AT FIRST 75% OF THE DOSIS, THEN 80%
     Dates: start: 201612
  2. IRINOTECAN HCL [Suspect]
     Active Substance: IRINOTECAN HYDROCHLORIDE
     Indication: PANCREATIC CARCINOMA METASTATIC
     Dosage: AT FIRST 75% OF THE DOSIS, THEN 80%
     Dates: start: 201612
  3. FLUOROURACIL. [Suspect]
     Active Substance: FLUOROURACIL
     Indication: PANCREATIC CARCINOMA METASTATIC
     Dosage: AT FIRST 75% OF THE DOSIS, THEN 80%
     Dates: start: 201612

REACTIONS (2)
  - Asthenia [Unknown]
  - Fatigue [Unknown]

NARRATIVE: CASE EVENT DATE: 2017
